FAERS Safety Report 14479351 (Version 2)
Quarter: 2018Q1

REPORT INFORMATION
  Report Type: Spontaneous
  Country: US (occurrence: US)
  Receive Date: 20180202
  Receipt Date: 20180323
  Transmission Date: 20180509
  Serious: No
  Sender: FDA-Public Use
  Company Number: US-BAYER-2018-021409

PATIENT
  Sex: Female

DRUGS (1)
  1. CLIMARA [Suspect]
     Active Substance: ESTRADIOL
     Dosage: UNK
     Route: 062
     Dates: start: 2007

REACTIONS (6)
  - Product physical issue [None]
  - Application site erythema [None]
  - Application site pain [None]
  - Wrong technique in product usage process [None]
  - Application site pruritus [None]
  - Product adhesion issue [None]

NARRATIVE: CASE EVENT DATE: 201606
